FAERS Safety Report 17007399 (Version 1)
Quarter: 2019Q4

REPORT INFORMATION
  Report Type: Other
  Country: GB (occurrence: GB)
  Receive Date: 20191108
  Receipt Date: 20191108
  Transmission Date: 20200122
  Serious: No
  Sender: FDA-Public Use
  Company Number: GB-LUPIN PHARMACEUTICALS INC.-2018-07859

PATIENT
  Age: 76 Year
  Sex: Female
  Weight: 51 kg

DRUGS (20)
  1. QUININE [Concomitant]
     Active Substance: QUININE
     Indication: ILL-DEFINED DISORDER
     Dosage: 1 DF, QD, AT NIGHT
     Route: 065
     Dates: start: 20180917
  2. LANSOPRAZOLE. [Concomitant]
     Active Substance: LANSOPRAZOLE
     Indication: ILL-DEFINED DISORDER
     Dosage: 1 DF, QD
     Route: 065
     Dates: start: 20171218
  3. SERETIDE [Concomitant]
     Active Substance: FLUTICASONE PROPIONATE\SALMETEROL XINAFOATE
     Indication: ILL-DEFINED DISORDER
     Dosage: 2 DF, BID (INHALE 2 DOSES TWICE DAILY)
     Route: 055
     Dates: start: 20180703, end: 20180806
  4. PREDNISOLONE. [Concomitant]
     Active Substance: PREDNISOLONE
     Indication: ILL-DEFINED DISORDER
     Dosage: 1 DF, QD
     Route: 065
     Dates: start: 20181004, end: 20181009
  5. LANSOPRAZOLE. [Suspect]
     Active Substance: LANSOPRAZOLE
     Indication: PRODUCT USED FOR UNKNOWN INDICATION
     Dosage: UNK
     Route: 065
     Dates: start: 20181004
  6. SALBUTAMOL [Concomitant]
     Active Substance: ALBUTEROL
     Indication: ILL-DEFINED DISORDER
     Dosage: UNK UNK, PRN, 2 PUFFS FOUR HOURLY WHEN REQUIRED
     Route: 065
     Dates: start: 20180604
  7. CREON [Concomitant]
     Active Substance: PANCRELIPASE AMYLASE\PANCRELIPASE LIPASE\PANCRELIPASE PROTEASE
     Indication: ILL-DEFINED DISORDER
     Dosage: UNK, TAKE 5-8 CAPSULES WITH MAIN MEALS AND 2-3 CAPSULES
     Route: 065
     Dates: start: 20180703
  8. FOSTAIR [Concomitant]
     Active Substance: BECLOMETHASONE\FORMOTEROL
     Indication: ILL-DEFINED DISORDER
     Dosage: 2 DF, BID, TWO PUFFS TWICE DAILY
     Route: 065
     Dates: start: 20180806
  9. CLARITHROMYCIN. [Suspect]
     Active Substance: CLARITHROMYCIN
     Indication: PRODUCT USED FOR UNKNOWN INDICATION
     Dosage: UNK
     Route: 065
     Dates: start: 20181004
  10. LOPERAMIDE [Concomitant]
     Active Substance: LOPERAMIDE
     Indication: ILL-DEFINED DISORDER
     Dosage: UNK UNK, PRN, 2 MG QDS PRN
     Route: 065
     Dates: start: 20180604
  11. FORCEVAL                           /08120001/ [Concomitant]
     Active Substance: MINERALS\VITAMINS
     Indication: ILL-DEFINED DISORDER
     Dosage: 1 DF, QD
     Route: 065
     Dates: start: 20180117
  12. PROBIOTIC                          /06395501/ [Concomitant]
     Active Substance: BIFIDOBACTERIUM ANIMALIS LACTIS
     Indication: ILL-DEFINED DISORDER
     Dosage: UNK, USE AS DIRECTED
     Route: 065
     Dates: start: 20170921
  13. DOUBLEBASE [Concomitant]
     Active Substance: ISOPROPYL MYRISTATE\PARAFFIN
     Indication: ILL-DEFINED DISORDER
     Dosage: UNK, AS DIRECTED
     Route: 065
     Dates: start: 20170802
  14. EZETIMIBE. [Concomitant]
     Active Substance: EZETIMIBE
     Indication: ILL-DEFINED DISORDER
     Dosage: 1 DF, QD
     Route: 065
     Dates: start: 20180604
  15. NORTRIPTYLINE [Concomitant]
     Active Substance: NORTRIPTYLINE
     Indication: ILL-DEFINED DISORDER
     Dosage: 2 DF, QD
     Route: 065
     Dates: start: 20170530
  16. VISCOTEARS [Concomitant]
     Active Substance: CARBOMER
     Indication: ILL-DEFINED DISORDER
     Dosage: 1 DROP, PRN
     Route: 065
     Dates: start: 20180308
  17. PARACETAMOL [Concomitant]
     Active Substance: ACETAMINOPHEN
     Indication: ILL-DEFINED DISORDER
     Dosage: UNK, 2QDSPRN DO NOT TAKE THESE IF TAKING CO-CODAMOL
     Route: 065
     Dates: start: 20170104
  18. AMOXICILLIN. [Suspect]
     Active Substance: AMOXICILLIN
     Indication: PRODUCT USED FOR UNKNOWN INDICATION
     Dosage: UNK
     Route: 065
     Dates: start: 20181004
  19. AMOXICILLIN. [Concomitant]
     Active Substance: AMOXICILLIN
     Indication: ILL-DEFINED DISORDER
     Dosage: 1 DF, TID
     Route: 065
     Dates: start: 20181004, end: 20181009
  20. COCODAMOL [Concomitant]
     Active Substance: ACETAMINOPHEN\CODEINE PHOSPHATE
     Indication: ILL-DEFINED DISORDER
     Dosage: UNK UNK, QID, TAKE 1 OR 2
     Route: 065
     Dates: start: 20180917

REACTIONS (1)
  - Diarrhoea [Recovered/Resolved]

NARRATIVE: CASE EVENT DATE: 20181004
